FAERS Safety Report 8972850 (Version 1)
Quarter: 2012Q4

REPORT INFORMATION
  Report Type: Report from Study
  Country: FR (occurrence: FR)
  Receive Date: 20121218
  Receipt Date: 20121218
  Transmission Date: 20130627
  Serious: Yes (Hospitalization, Other)
  Sender: FDA-Public Use
  Company Number: FR-ROCHE-GNE247093

PATIENT
  Sex: Male

DRUGS (6)
  1. RITUXIMAB [Suspect]
     Indication: RHEUMATOID ARTHRITIS
     Dosage: 1 g, UNK
     Route: 042
     Dates: start: 20070206, end: 20070206
  2. CORTANCYL [Suspect]
     Indication: RHEUMATOID ARTHRITIS
     Dosage: 20 mg, qd
     Route: 048
  3. NOVATREX [Suspect]
     Indication: RHEUMATOID ARTHRITIS
     Dosage: 10 mg, 1/Week
     Route: 048
     Dates: start: 20060120, end: 20070127
  4. NEORAL [Suspect]
     Indication: RHEUMATOID ARTHRITIS
     Dosage: 140 mg, bid
     Route: 048
     Dates: start: 20051110
  5. TRIATEC [Concomitant]
     Indication: PRODUCT USED FOR UNKNOWN INDICATION
  6. GLUCOPHAGE [Concomitant]
     Route: 065

REACTIONS (3)
  - Bladder cancer [Recovered/Resolved with Sequelae]
  - Metastatic carcinoma of the bladder [Unknown]
  - Bladder cancer recurrent [Unknown]
